FAERS Safety Report 4557202-3 (Version None)
Quarter: 2005Q1

REPORT INFORMATION
  Report Type: 
  Country: None (occurrence: None)
  Receive Date: 20050120
  Receipt Date: 20030324
  Transmission Date: 20050727
  Serious: Yes (Hospitalization)
  Sender: FDA-Public Use
  Company Number: US-BRISTOL-MYERS SQUIBB COMPANY-12205605

PATIENT
  Age: 70 Year
  Sex: Male
  Weight: 69 kg

DRUGS (5)
  1. CISPLATIN [Suspect]
     Indication: NEOPLASM MALIGNANT
     Route: 042
     Dates: start: 20000419
  2. CETUXIMAB [Suspect]
     Indication: NEOPLASM MALIGNANT
     Route: 042
     Dates: start: 20000623
  3. NORMODYNE [Concomitant]
  4. QUINIDINE HCL [Concomitant]
  5. PRILOSEC [Concomitant]

REACTIONS (4)
  - ANAEMIA [None]
  - BACK PAIN [None]
  - FALL [None]
  - HYPONATRAEMIA [None]
